FAERS Safety Report 19731823 (Version 9)
Quarter: 2022Q2

REPORT INFORMATION
  Report Type: Report from Study
  Country: None (occurrence: US)
  Receive Date: 20210820
  Receipt Date: 20220622
  Transmission Date: 20220720
  Serious: Yes (Hospitalization, Other)
  Sender: FDA-Public Use
  Company Number: US-AKCEA THERAPEUTICS, INC.-2021IS001360

PATIENT
  Age: 53 Year
  Sex: Male

DRUGS (3)
  1. TEGSEDI [Suspect]
     Active Substance: INOTERSEN SODIUM
     Indication: Hereditary neuropathic amyloidosis
     Route: 058
     Dates: start: 20210331, end: 20210630
  2. DEVICE [Suspect]
     Active Substance: DEVICE
  3. TEGSEDI [Suspect]
     Active Substance: INOTERSEN SODIUM
     Route: 058

REACTIONS (18)
  - Protein urine present [Not Recovered/Not Resolved]
  - Suicidal ideation [Unknown]
  - Malaise [Unknown]
  - Asthenia [Unknown]
  - Anxiety [Unknown]
  - Urine protein/creatinine ratio abnormal [Unknown]
  - Depressed mood [Unknown]
  - Bladder pain [Unknown]
  - Urinary incontinence [Unknown]
  - Weight decreased [Unknown]
  - Burning sensation [Unknown]
  - Decreased appetite [Unknown]
  - Prostatomegaly [Unknown]
  - Hypoaesthesia [Unknown]
  - Urinary retention [Unknown]
  - Abdominal discomfort [Unknown]
  - Weight gain poor [Unknown]
  - Body fat disorder [Unknown]

NARRATIVE: CASE EVENT DATE: 20211228
